FAERS Safety Report 4382576-6 (Version None)
Quarter: 2004Q2

REPORT INFORMATION
  Report Type: 
  Country: None (occurrence: None)
  Receive Date: 20040622
  Receipt Date: 20040402
  Transmission Date: 20050107
  Serious: Yes (Death)
  Sender: FDA-Public Use
  Company Number: BR-ROCHE-363710

PATIENT
  Age: 30 Year
  Sex: Female

DRUGS (2)
  1. ROACUTAN [Suspect]
     Indication: ACNE
     Route: 048
     Dates: start: 20040315, end: 20040315
  2. POISON [Concomitant]
     Dosage: RAT POISON

REACTIONS (1)
  - COMPLETED SUICIDE [None]
